FAERS Safety Report 9286595 (Version 1)
Quarter: 2013Q2

REPORT INFORMATION
  Report Type: Other
  Country: DE (occurrence: DE)
  Receive Date: 20130513
  Receipt Date: 20130513
  Transmission Date: 20140414
  Serious: Yes (Congenital Anomaly)
  Sender: FDA-Public Use
  Company Number: DE-ACTAVIS-2013-08666

PATIENT
  Sex: Male

DRUGS (6)
  1. IBUPROFEN (UNKNOWN) [Suspect]
     Indication: ANKYLOSING SPONDYLITIS
     Dosage: 300 MG, DAILY
     Route: 064
     Dates: start: 20120301, end: 20120925
  2. DAIVOBET [Concomitant]
     Indication: PSORIASIS
     Dosage: SMALL-AREA
     Route: 065
     Dates: start: 20120201
  3. FOLIC ACID [Concomitant]
     Indication: PROPHYLAXIS OF NEURAL TUBE DEFECT
     Dosage: 0.8 MG, DAILY
     Route: 065
     Dates: start: 20120201
  4. KADEFUNGIN [Concomitant]
     Indication: VULVOVAGINAL MYCOTIC INFECTION
     Dosage: 20 MG, DAILY
     Route: 065
  5. MIFEGYNE [Concomitant]
     Indication: ABORTION INDUCED
     Dosage: UNK
     Route: 065
     Dates: start: 20120925, end: 20120925
  6. CYTOTEC [Concomitant]
     Indication: ABORTION INDUCED
     Dosage: UNK
     Route: 065
     Dates: start: 20120925, end: 20120925

REACTIONS (11)
  - Ventricular septal defect [Unknown]
  - Skeletal dysplasia [Unknown]
  - Foetal growth restriction [Unknown]
  - Foetal exposure during pregnancy [Unknown]
  - Maternal drugs affecting foetus [None]
  - Oligohydramnios [None]
  - Foetal hypokinesia [None]
  - Placental insufficiency [None]
  - Stillbirth [None]
  - Abortion induced [None]
  - Ultrasound antenatal screen abnormal [None]
